FAERS Safety Report 26181973 (Version 4)
Quarter: 2025Q4

REPORT INFORMATION
  Report Type: Spontaneous
  Country: US (occurrence: US)
  Receive Date: 20251221
  Receipt Date: 20251223
  Transmission Date: 20260118
  Serious: Yes (Other)
  Sender: ROCHE
  Company Number: US-ROCHE-10000463463

PATIENT

DRUGS (3)
  1. RITUXAN [Suspect]
     Active Substance: RITUXIMAB
     Indication: Lupus nephritis
  2. RITUXAN [Suspect]
     Active Substance: RITUXIMAB
     Indication: Rheumatoid arthritis
  3. SYNTHROID [Concomitant]
     Active Substance: LEVOTHYROXINE SODIUM

REACTIONS (4)
  - Mitral valve prolapse [Unknown]
  - Tachycardia [Unknown]
  - Hyperthyroidism [Unknown]
  - Tachycardia [Not Recovered/Not Resolved]
